FAERS Safety Report 4591403-3 (Version None)
Quarter: 2005Q1

REPORT INFORMATION
  Report Type: 
  Country: None (occurrence: None)
  Receive Date: 20050225
  Receipt Date: 20041220
  Transmission Date: 20050727
  Serious: Yes (Death)
  Sender: FDA-Public Use
  Company Number: PHEH2004US13594

PATIENT
  Age: 19 Year
  Sex: Male

DRUGS (5)
  1. DEPAKOTE [Concomitant]
  2. AMOXICILLIN [Concomitant]
  3. NASACORT [Concomitant]
  4. ALBUTEROL [Concomitant]
  5. CLOZARIL [Suspect]
     Dosage: 350 MG, QD
     Route: 048

REACTIONS (6)
  - CARDIAC ARREST [None]
  - CONVULSION [None]
  - FALL [None]
  - INTUBATION [None]
  - MYOCARDIAL INFARCTION [None]
  - RESUSCITATION [None]
